FAERS Safety Report 10602014 (Version 2)
Quarter: 2014Q4

REPORT INFORMATION
  Report Type: Report from Study
  Country: ES (occurrence: ES)
  Receive Date: 20141124
  Receipt Date: 20141124
  Transmission Date: 20150529
  Serious: Yes (Death, Hospitalization)
  Sender: FDA-Public Use
  Company Number: ES-CELGENE-144-21880-13071223

PATIENT
  Age: 80 Year
  Sex: Female

DRUGS (6)
  1. AERIUS [Concomitant]
     Active Substance: DESLORATADINE
     Indication: RHINITIS
     Dosage: 10 MILLIGRAM
     Route: 048
  2. LORAZEPAM. [Concomitant]
     Active Substance: LORAZEPAM
     Indication: ANXIETY
     Dosage: 5 MILLIGRAM
     Route: 048
  3. TELMISARTAN. [Concomitant]
     Active Substance: TELMISARTAN
     Indication: HYPERTENSION
     Route: 048
  4. TORASEMIDE [Concomitant]
     Active Substance: TORSEMIDE
     Indication: HYPERTENSION
     Dosage: 80 MILLIGRAM
     Route: 048
  5. AMLODIPINE [Concomitant]
     Active Substance: AMLODIPINE BESYLATE
     Indication: HYPERTENSION
     Route: 048
  6. REVLIMID [Suspect]
     Active Substance: LENALIDOMIDE
     Indication: 5Q MINUS SYNDROME
     Dosage: 10 MILLIGRAM
     Route: 048
     Dates: start: 20130627, end: 20130702

REACTIONS (2)
  - Ovarian epithelial cancer [Fatal]
  - Acute hepatitis C [Recovered/Resolved]

NARRATIVE: CASE EVENT DATE: 20130704
